FAERS Safety Report 9094065 (Version 2)
Quarter: 2013Q1

REPORT INFORMATION
  Report Type: Report from Study
  Country: CA (occurrence: CA)
  Receive Date: 20130201
  Receipt Date: 20130228
  Transmission Date: 20140127
  Serious: Yes (Other)
  Sender: FDA-Public Use
  Company Number: CA-JNJFOC-20130112550

PATIENT
  Age: 47 Year
  Sex: Female
  Weight: 50.4 kg

DRUGS (16)
  1. REMICADE [Suspect]
     Indication: RHEUMATOID ARTHRITIS
     Dosage: INFUSION NO:57
     Route: 042
     Dates: start: 20130121
  2. REMICADE [Suspect]
     Indication: RHEUMATOID ARTHRITIS
     Route: 042
     Dates: start: 20060320
  3. SUPEUDOL [Concomitant]
     Route: 065
  4. TYLENOL 3 [Concomitant]
     Route: 065
  5. REACTINE [Concomitant]
     Route: 065
  6. FOSAMAX [Concomitant]
     Route: 065
  7. CALCIUM [Concomitant]
     Route: 065
  8. IRON SUPPLEMENT [Concomitant]
     Route: 065
  9. NAPROXEN [Concomitant]
     Route: 065
  10. ADVIL [Concomitant]
     Route: 065
  11. FLEXERIL [Concomitant]
     Route: 065
  12. GRAVOL [Concomitant]
     Route: 065
  13. ATIVAN [Concomitant]
     Route: 065
  14. ANTIDEPRESSANT [Concomitant]
     Route: 065
  15. CYCLOBENZAPRINE [Concomitant]
     Route: 065
  16. UNKNOWN MEDICATION [Concomitant]
     Route: 065

REACTIONS (5)
  - Head injury [Recovered/Resolved]
  - Dizziness [Recovered/Resolved]
  - Fall [Recovered/Resolved]
  - Hypotension [Unknown]
  - Contusion [Recovered/Resolved]
